FAERS Safety Report 7515245-1 (Version None)
Quarter: 2011Q2

REPORT INFORMATION
  Report Type: 
  Country: None (occurrence: None)
  Receive Date: 20110601
  Receipt Date: 20100526
  Transmission Date: 20111010
  Serious: No
  Sender: FDA-Public Use
  Company Number: US-PFIZER INC-2010067130

PATIENT
  Sex: Male
  Weight: 95 kg

DRUGS (11)
  1. LISINOPRIL AND HYDROCHLOROTHIAZIDE [Concomitant]
     Indication: HYPERTENSION
     Dosage: 20/12.5 MG DAILY
     Route: 048
  2. TESTOSTERONE [Concomitant]
     Indication: ANDROGEN DEFICIENCY
     Dosage: EVERY 2 WEEKS
  3. METFORMIN [Concomitant]
     Indication: DIABETES MELLITUS
     Dosage: 500 MG, 2X/DAY
     Route: 048
  4. NIASPAN [Concomitant]
     Indication: BLOOD CHOLESTEROL INCREASED
  5. CHANTIX [Suspect]
     Indication: SMOKING CESSATION THERAPY
     Dosage: 0.5 MG, 1X/DAY
     Route: 048
     Dates: start: 20100501
  6. CHANTIX [Suspect]
     Dosage: 1 MG, 2X/DAY
     Route: 048
  7. TAMSULOSIN HYDROCHLORIDE [Concomitant]
     Indication: POLLAKIURIA
     Dosage: 0.4 MG, DAILY
     Route: 048
  8. SIMVASTATIN [Concomitant]
     Indication: BLOOD CHOLESTEROL INCREASED
     Dosage: 40 MG DAILY,
     Route: 048
  9. NIASPAN [Concomitant]
     Indication: BLOOD TRIGLYCERIDES INCREASED
     Dosage: 1000 MG, 2X/DAY
     Route: 048
  10. MENTAX [Concomitant]
     Indication: SKIN DISORDER
     Dosage: UNK
     Route: 061
     Dates: start: 20100501
  11. DENAVIR [Concomitant]
     Indication: CHAPPED LIPS
     Dosage: UNK
     Route: 061

REACTIONS (2)
  - FATIGUE [None]
  - POOR QUALITY SLEEP [None]
